FAERS Safety Report 9900519 (Version 3)
Quarter: 2014Q1

REPORT INFORMATION
  Report Type: Spontaneous
  Country: US (occurrence: US)
  Receive Date: 20140217
  Receipt Date: 20140304
  Transmission Date: 20141002
  Serious: No
  Sender: FDA-Public Use
  Company Number: US-BIOGENIDEC-2014BI014189

PATIENT
  Age: 46 Year
  Sex: Female

DRUGS (2)
  1. TYSABRI [Suspect]
     Indication: MULTIPLE SCLEROSIS
     Route: 042
  2. TYSABRI [Suspect]
     Indication: MULTIPLE SCLEROSIS
     Route: 042
     Dates: start: 20120918, end: 20131212

REACTIONS (9)
  - Ocular hyperaemia [Recovered/Resolved]
  - Depressed mood [Recovered/Resolved]
  - International normalised ratio decreased [Recovered/Resolved]
  - Eye discharge [Recovered/Resolved]
  - Conjunctivitis [Recovered/Resolved]
  - Oral herpes [Recovered/Resolved]
  - Asthenia [Unknown]
  - Fatigue [Recovered/Resolved]
  - Nausea [Recovered/Resolved]
